FAERS Safety Report 24158104 (Version 1)
Quarter: 2024Q3

REPORT INFORMATION
  Report Type: Spontaneous
  Country: US (occurrence: None)
  Receive Date: 20240731
  Receipt Date: 20240731
  Transmission Date: 20241017
  Serious: Yes (Other)
  Sender: Public
  Company Number: None

PATIENT
  Age: 76 Year
  Sex: Female
  Weight: 69.75 kg

DRUGS (6)
  1. POLYMYXIN B SULFATE\TRIMETHOPRIM [Suspect]
     Active Substance: POLYMYXIN B SULFATE\TRIMETHOPRIM
     Indication: Eye infection
     Dosage: OTHER QUANTITY : 10 DROP(S)?FREQUENCY : 4 TIMES A DAY?
     Route: 047
     Dates: start: 20240729, end: 20240730
  2. PRAVASTATIN [Concomitant]
  3. multivitamin [Concomitant]
  4. VITAMIN D [Concomitant]
     Active Substance: VITAMIN D NOS
  5. VITAMIN C [Concomitant]
     Active Substance: ASCORBIC ACID
  6. MAGNESIUM [Concomitant]

REACTIONS (3)
  - Eye pruritus [None]
  - Thermal burns of eye [None]
  - Instillation site reaction [None]

NARRATIVE: CASE EVENT DATE: 20240729
